FAERS Safety Report 4986610-1 (Version None)
Quarter: 2006Q2

REPORT INFORMATION
  Report Type: 
  Country: None (occurrence: None)
  Receive Date: 20060426
  Receipt Date: 20060320
  Transmission Date: 20061013
  Serious: Yes (Other)
  Sender: FDA-Public Use
  Company Number: 2006BH006364

PATIENT

DRUGS (1)
  1. MIDAZOLAM HYDROCHLORIDE [Suspect]
     Indication: CONVULSION NEONATAL
     Dosage: 4.0 UG/KG;/MIN;
     Route: 042

REACTIONS (1)
  - NEONATAL HYPOTENSION [None]
